FAERS Safety Report 5347205-3 (Version None)
Quarter: 2007Q2

REPORT INFORMATION
  Report Type: 
  Country: None (occurrence: None)
  Receive Date: 20070509
  Receipt Date: 20070125
  Transmission Date: 20071010
  Serious: Yes (Other)
  Sender: FDA-Public Use
  Company Number: PHEH2006US08980

PATIENT
  Age: 64 Year
  Sex: Male

DRUGS (5)
  1. TEGRETOL [Suspect]
     Indication: CONVULSION
     Dosage: 400 MG, QD
  2. LIPITOR [Concomitant]
  3. LISINOPIRL (LISINOPRIL) [Concomitant]
  4. ACIPHEX [Concomitant]
  5. ALL OTHER THERAPEUTIC PRODUCTS (NO INGREDIENTS/SUBSTANCES) INHALER [Concomitant]

REACTIONS (4)
  - APLASTIC ANAEMIA [None]
  - HAEMATOCRIT DECREASED [None]
  - HAEMOGLOBIN DECREASED [None]
  - MEAN CELL VOLUME ABNORMAL [None]
